FAERS Safety Report 15241300 (Version 2)
Quarter: 2018Q4

REPORT INFORMATION
  Report Type: Spontaneous
  Country: FR (occurrence: FR)
  Receive Date: 20180805
  Receipt Date: 20181012
  Transmission Date: 20190204
  Serious: Yes (Hospitalization)
  Sender: FDA-Public Use
  Company Number: FR-AUROBINDO-AUR-APL-2018-038895

PATIENT
  Age: 51 Year
  Sex: Female

DRUGS (5)
  1. PARACETAMOL [Suspect]
     Active Substance: ACETAMINOPHEN
     Indication: TONSILLITIS
     Dosage: 3 GRAM, ONCE A DAY
     Route: 048
     Dates: start: 20171207, end: 20171207
  2. NECYRANE [Suspect]
     Active Substance: RITIOMETAN
     Indication: TONSILLITIS
     Dosage: 6 DOSAGE FORM, ONCE A DAY (2 PULVERISATION 3X PAR JOUR)
     Route: 045
     Dates: start: 20171207, end: 20171207
  3. HEXASPRAY [Suspect]
     Active Substance: BICLOTYMOL
     Indication: TONSILLITIS
     Dosage: 6 DOSAGE FORM, ONCE A DAY (2 PULVERISATION 3X PAR JOUR)
     Route: 002
     Dates: start: 20171207, end: 20171207
  4. AMOXICILLIN. [Suspect]
     Active Substance: AMOXICILLIN
     Indication: TONSILLITIS
     Dosage: 2 GRAM, ONCE A DAY
     Route: 048
     Dates: start: 20171207, end: 20171207
  5. DIMETANE SANS SUCRE [Suspect]
     Active Substance: BROMPHENIRAMINE MALEATE\PHOLCODINE
     Indication: TONSILLITIS
     Dosage: 1 CUILLIERE A SOUPE 3X PAR JOUR
     Route: 048
     Dates: start: 20151207, end: 20151207

REACTIONS (4)
  - Urticaria [Recovered/Resolved]
  - Paraesthesia [Recovered/Resolved]
  - Chest discomfort [Recovered/Resolved]
  - Hypersensitivity [Recovered/Resolved]

NARRATIVE: CASE EVENT DATE: 20171207
